FAERS Safety Report 19206831 (Version 3)
Quarter: 2025Q1

REPORT INFORMATION
  Report Type: Spontaneous
  Country: BR (occurrence: BR)
  Receive Date: 20210503
  Receipt Date: 20250207
  Transmission Date: 20250409
  Serious: Yes (Other)
  Sender: AMERICAN REGENT
  Company Number: BR-AMERICAN REGENT INC-2021001130

PATIENT
  Age: 29 Year
  Sex: Female
  Weight: 70.1 kg

DRUGS (6)
  1. VENOFER [Suspect]
     Active Substance: IRON SUCROSE
     Indication: Iron deficiency anaemia
     Route: 042
     Dates: start: 201909
  2. VENOFER [Suspect]
     Active Substance: IRON SUCROSE
     Route: 042
     Dates: start: 202104
  3. VENOFER [Suspect]
     Active Substance: IRON SUCROSE
     Route: 042
     Dates: start: 20210407
  4. IRON POLYMALTOSE [Suspect]
     Active Substance: IRON POLYMALTOSE
     Indication: Iron deficiency anaemia
     Route: 048
     Dates: start: 201902
  5. IRON POLYMALTOSE [Suspect]
     Active Substance: IRON POLYMALTOSE
     Route: 048
     Dates: start: 201905, end: 201909
  6. IRON POLYMALTOSE [Suspect]
     Active Substance: IRON POLYMALTOSE
     Route: 048
     Dates: start: 202101

REACTIONS (8)
  - Product dose omission issue [Unknown]
  - Maternal exposure during pregnancy [Unknown]
  - Malabsorption [Unknown]
  - Serum ferritin decreased [Unknown]
  - Haemoglobin decreased [Unknown]
  - Leukocytosis [Unknown]
  - Therapy non-responder [Unknown]
  - Product availability issue [Unknown]

NARRATIVE: CASE EVENT DATE: 20210101
